FAERS Safety Report 9882494 (Version 1)
Quarter: 2014Q1

REPORT INFORMATION
  Report Type: Spontaneous
  Country: US (occurrence: US)
  Receive Date: 20140207
  Receipt Date: 20140207
  Transmission Date: 20141002
  Serious: No
  Sender: FDA-Public Use
  Company Number: US-B.I. PHARMACEUTICALS,INC./RIDGEFIELD-2014-BI-04994BP

PATIENT
  Sex: Female
  Weight: 50 kg

DRUGS (7)
  1. PRADAXA [Suspect]
     Indication: ATRIAL FIBRILLATION
     Dosage: 150 MG
     Route: 048
     Dates: start: 2013
  2. ATORVASTATIN [Concomitant]
     Indication: BLOOD CHOLESTEROL INCREASED
     Dosage: 20 MG
     Route: 048
  3. DIAZEPAM [Concomitant]
     Indication: ANXIETY
     Dosage: 300 MG
     Route: 048
  4. EVISTA [Concomitant]
     Indication: OSTEOPOROSIS
     Dosage: 60 MG
     Route: 048
  5. HYDROXYCHLOROQUINE [Concomitant]
     Indication: RHEUMATOID ARTHRITIS
     Dosage: 400 MG
     Route: 048
  6. LEVOTHYROXINE [Concomitant]
     Indication: HYPOTHYROIDISM
     Dosage: 50 MCG
     Route: 048
  7. TRIAMTERENE HCTZ [Concomitant]
     Indication: HYPERTENSION
     Dosage: DOSE PER APPLICATION: 37.5-25 MG; DAILY DOSE: 37.5-25 MG
     Route: 048

REACTIONS (3)
  - Contusion [Not Recovered/Not Resolved]
  - Contusion [Not Recovered/Not Resolved]
  - Pain in extremity [Not Recovered/Not Resolved]
